FAERS Safety Report 7615613-3 (Version None)
Quarter: 2011Q3

REPORT INFORMATION
  Report Type: 
  Country: None (occurrence: None)
  Receive Date: 20110711
  Receipt Date: 20110613
  Transmission Date: 20111222
  Serious: No
  Sender: FDA-Public Use
  Company Number: 15680879

PATIENT
  Age: 79 Year
  Sex: Male

DRUGS (8)
  1. BISOCARD (BISOPROLOL FUMARATE) [Concomitant]
  2. SIMVASTEROL (SIMVASTATIN) [Concomitant]
  3. AMIODARONE (AMIODARONE HCL) [Concomitant]
  4. VINPOCETINE (VINPOCETINE) [Concomitant]
  5. ENALAPRIL MALEATE [Concomitant]
  6. WARFARIN SODIUM [Suspect]
     Indication: THROMBOSIS PROPHYLAXIS
     Dosage: 4 MILLIGRAM 1 DAY ORAL
     Route: 048
     Dates: start: 20091207, end: 20110227
  7. PLACEBO [Suspect]
     Indication: THROMBOSIS PROPHYLAXIS
     Dosage: ORAL
     Route: 048
     Dates: start: 20091207, end: 20110101
  8. TIALORID (AMILORIDE HCL + HCTZ) [Concomitant]

REACTIONS (1)
  - BASAL CELL CARCINOMA [None]
